FAERS Safety Report 17450431 (Version 1)
Quarter: 2020Q1

REPORT INFORMATION
  Report Type: Spontaneous
  Country: US (occurrence: US)
  Receive Date: 20200210
  Receipt Date: 20200210
  Transmission Date: 20200409
  Serious: Yes (Hospitalization)
  Sender: FDA-Public Use
  Company Number: None

PATIENT
  Age: 38 Year
  Sex: Female

DRUGS (16)
  1. PAROXETINE. [Concomitant]
     Active Substance: PAROXETINE
  2. ALPRAZOLAM. [Concomitant]
     Active Substance: ALPRAZOLAM
  3. CEPHALEXIN. [Concomitant]
     Active Substance: CEPHALEXIN
  4. FUROSEMIDE. [Concomitant]
     Active Substance: FUROSEMIDE
  5. GABAPENTIN. [Concomitant]
     Active Substance: GABAPENTIN
  6. LOSARTAN POT [Concomitant]
     Active Substance: LOSARTAN POTASSIUM
  7. TRIAMCINOLON CRE [Concomitant]
  8. TRAZODONE [Concomitant]
     Active Substance: TRAZODONE HYDROCHLORIDE
  9. POT CL MICRO [Concomitant]
  10. LORAZEPAM. [Concomitant]
     Active Substance: LORAZEPAM
  11. SPIRONLACT [Concomitant]
  12. OXYCODONE AND ACETAMINOPHEN [Concomitant]
     Active Substance: ACETAMINOPHEN\OXYCODONE HYDROCHLORIDE
  13. TADALAFIL. [Concomitant]
     Active Substance: TADALAFIL
  14. AMBRISENTAN 10MG TAB [Suspect]
     Active Substance: AMBRISENTAN
     Indication: PULMONARY ARTERIAL HYPERTENSION
     Dosage: ?          OTHER DOSE:1 TAB;?
     Route: 048
     Dates: start: 20180524
  15. LASIX [Concomitant]
     Active Substance: FUROSEMIDE
  16. TEMAZEPAM. [Concomitant]
     Active Substance: TEMAZEPAM

REACTIONS (2)
  - Headache [None]
  - Influenza [None]

NARRATIVE: CASE EVENT DATE: 20200203
